FAERS Safety Report 8135337-6 (Version None)
Quarter: 2012Q1

REPORT INFORMATION
  Report Type: 
  Country: None (occurrence: None)
  Receive Date: 20120210
  Receipt Date: 20120201
  Transmission Date: 20120608
  Serious: Yes (Hospitalization)
  Sender: FDA-Public Use
  Company Number: DKLU1076613

PATIENT
  Age: 56 Year
  Sex: Female

DRUGS (4)
  1. ONFI [Suspect]
     Indication: TEMPORAL LOBE EPILEPSY
  2. VALPROATE SODIUM [Suspect]
     Indication: TEMPORAL LOBE EPILEPSY
  3. LAMOTRIGINE [Suspect]
     Indication: TEMPORAL LOBE EPILEPSY
  4. VALPROATE SODIUM [Concomitant]

REACTIONS (8)
  - URINARY TRACT INFECTION [None]
  - HEPATIC LESION [None]
  - BONE MARROW FAILURE [None]
  - HEPATIC STEATOSIS [None]
  - NEUTROPENIC SEPSIS [None]
  - HAEMOGLOBIN DECREASED [None]
  - PERIPHERAL SENSORIMOTOR NEUROPATHY [None]
  - BLOOD THYROID STIMULATING HORMONE DECREASED [None]
